FAERS Safety Report 7230727-8 (Version None)
Quarter: 2011Q1

REPORT INFORMATION
  Report Type: 
  Country: None (occurrence: None)
  Receive Date: 20110118
  Receipt Date: 20110110
  Transmission Date: 20110831
  Serious: Yes (Disabling, Other)
  Sender: FDA-Public Use
  Company Number: GB-JNJFOC-20110102463

PATIENT
  Age: 34 Year
  Sex: Female

DRUGS (1)
  1. REMICADE [Suspect]
     Indication: CROHN'S DISEASE
     Route: 042
     Dates: start: 20090303, end: 20100823

REACTIONS (3)
  - DRUG EXPOSURE BEFORE PREGNANCY [None]
  - SYSTEMIC LUPUS ERYTHEMATOSUS [None]
  - ABORTION SPONTANEOUS [None]
